FAERS Safety Report 4569792-5 (Version None)
Quarter: 2005Q1

REPORT INFORMATION
  Report Type: 
  Country: None (occurrence: None)
  Receive Date: 20050131
  Receipt Date: 20050118
  Transmission Date: 20050727
  Serious: Yes (Death, Other)
  Sender: FDA-Public Use
  Company Number: 2005015096

PATIENT
  Age: 83 Year
  Sex: Female

DRUGS (10)
  1. CELEBREX [Suspect]
     Indication: OSTEOARTHRITIS
     Dosage: 200 (200 MG, 1 IN 1 D)
  2. NAPROXEN SODIUM [Concomitant]
  3. DONEPEZIL HCL [Concomitant]
  4. TOLTERODINE TARTRATE [Concomitant]
  5. LANSOPRAZOLE [Concomitant]
  6. FLUOXETINE HYDROCHLORIDE [Concomitant]
  7. CHLORPROMAZINE [Concomitant]
  8. TRIHEXYPHENIDYL HCL [Concomitant]
  9. MULTIVITAMINS (ASCORBIC ACID, ERGOCALCIFEROL, FOLIC ACID, NICOTINAMIDE [Concomitant]
  10. CONJUGATED ESTROGENS [Concomitant]

REACTIONS (2)
  - COMA [None]
  - MYOCARDIAL INFARCTION [None]
